FAERS Safety Report 9209533 (Version 1)
Quarter: 2013Q1

REPORT INFORMATION
  Report Type: Spontaneous
  Country: US (occurrence: None)
  Receive Date: 20120816
  Receipt Date: 20120816
  Transmission Date: 20140127
  Serious: Yes (Hospitalization)
  Sender: FDA-Public Use
  Company Number: SP04279

PATIENT
  Age: 58 Year
  Sex: Female

DRUGS (1)
  1. MOVIPREP (SOLUTION) [Suspect]
     Indication: BOWEL PREPARATION
     Route: 048
     Dates: start: 201109, end: 201109

REACTIONS (2)
  - Electrolyte imbalance [None]
  - Convulsion [None]
